FAERS Safety Report 5667710-X (Version None)
Quarter: 2008Q1

REPORT INFORMATION
  Report Type: 
  Country: None (occurrence: None)
  Receive Date: 20080315
  Receipt Date: 20080115
  Transmission Date: 20080703
  Serious: No
  Sender: FDA-Public Use
  Company Number: US-ABBOTT-08P-163-0435923-00

PATIENT
  Age: 40 Year
  Sex: Male

DRUGS (2)
  1. HUMIRA [Suspect]
     Indication: PSORIATIC ARTHROPATHY
     Route: 058
     Dates: start: 20080101, end: 20080101
  2. PREDNISONE [Suspect]
     Indication: PSORIATIC ARTHROPATHY
     Route: 048

REACTIONS (2)
  - ECCHYMOSIS [None]
  - HAEMARTHROSIS [None]
